FAERS Safety Report 5663905-X (Version None)
Quarter: 2008Q1

REPORT INFORMATION
  Report Type: 
  Country: None (occurrence: None)
  Receive Date: 20080311
  Receipt Date: 20080306
  Transmission Date: 20080703
  Serious: Yes (Other)
  Sender: FDA-Public Use
  Company Number: 2008SP004670

PATIENT

DRUGS (1)
  1. INTRON A [Suspect]
     Indication: DRUG USE FOR UNKNOWN INDICATION
     Dosage: IM
     Route: 030

REACTIONS (2)
  - PULMONARY OEDEMA [None]
  - UNEVALUABLE EVENT [None]
